FAERS Safety Report 6652726-7 (Version None)
Quarter: 2010Q1

REPORT INFORMATION
  Report Type: 
  Country: None (occurrence: None)
  Receive Date: 20100326
  Receipt Date: 20100315
  Transmission Date: 20100710
  Serious: Yes (Other)
  Sender: FDA-Public Use
  Company Number: JP-JNJFOC-20100304958

PATIENT
  Sex: Female
  Weight: 44 kg

DRUGS (7)
  1. DOXORUBICIN HCL [Suspect]
     Indication: OVARIAN CANCER RECURRENT
     Route: 042
  2. DOXORUBICIN HCL [Suspect]
     Route: 042
  3. GRANISETRON HYDROCHLORIDE [Concomitant]
     Indication: PROPHYLAXIS
     Route: 042
  4. DEXAMETHASONE SODIUM PHOSPHATE [Concomitant]
     Indication: PROPHYLAXIS
     Route: 042
  5. AZULENE SULFONATE SODIUM [Concomitant]
     Indication: PROPHYLAXIS
     Route: 048
  6. METOCLOPRAMIDE [Concomitant]
     Indication: VOMITING
     Route: 048
  7. METOCLOPRAMIDE [Concomitant]
     Indication: PROPHYLAXIS
     Route: 048

REACTIONS (2)
  - HEPATIC FUNCTION ABNORMAL [None]
  - NEUTROPHIL COUNT DECREASED [None]
